FAERS Safety Report 9663374 (Version 2)
Quarter: 2014Q1

REPORT INFORMATION
  Report Type: Spontaneous
  Country: US (occurrence: US)
  Receive Date: 20131101
  Receipt Date: 20140307
  Transmission Date: 20141002
  Serious: No
  Sender: FDA-Public Use
  Company Number: US-009507513-1310USA010349

PATIENT
  Age: 56 Year
  Sex: Female
  Weight: 57.6 kg

DRUGS (9)
  1. VICTRELIS [Suspect]
     Dosage: 4 DF, TID
     Route: 048
     Dates: start: 20130820
  2. REBETOL [Suspect]
     Dosage: 2 TABLETS, IN THE MORNING
     Route: 048
  3. REBETOL [Suspect]
     Dosage: 1 TABLETS, IN THE EVENING
     Route: 048
  4. PEGASYS [Suspect]
     Dosage: 180 MICROGRAM, QW
     Route: 048
     Dates: start: 20130723
  5. IBUPROFEN [Concomitant]
     Dosage: 400 MG, Q4H
     Dates: start: 20130723
  6. CLARITIN [Concomitant]
     Dosage: 10 MG, DAILY
     Dates: start: 20131005
  7. BENADRYL [Concomitant]
     Dosage: 25 MG, PRN
  8. HYDROCORTISONE [Concomitant]
     Dosage: UNK, TID
     Dates: start: 20131016
  9. TRIAMCINOLONE [Concomitant]
     Dosage: UNK, TID
     Dates: start: 20131016

REACTIONS (1)
  - Anaemia [Not Recovered/Not Resolved]
